FAERS Safety Report 24043888 (Version 1)
Quarter: 2024Q3

REPORT INFORMATION
  Report Type: Report from Study
  Country: US (occurrence: US)
  Receive Date: 20240703
  Receipt Date: 20240703
  Transmission Date: 20241016
  Serious: Yes (Other)
  Sender: CONCORD BIOTECH
  Company Number: US-CBL-002677

PATIENT
  Age: 58 Year
  Sex: Male

DRUGS (6)
  1. TACROLIMUS [Suspect]
     Active Substance: TACROLIMUS
     Indication: Prophylaxis against transplant rejection
     Route: 065
  2. MYCOPHENOLATE MOFETIL [Suspect]
     Active Substance: MYCOPHENOLATE MOFETIL
     Indication: Prophylaxis against transplant rejection
     Route: 065
  3. ATEZOLIZUMAB [Concomitant]
     Active Substance: ATEZOLIZUMAB
     Indication: Hepatocellular carcinoma
     Route: 065
  4. BEVACIZUMAB [Concomitant]
     Active Substance: BEVACIZUMAB
     Indication: Hepatocellular carcinoma
     Route: 065
  5. CABOZANTINIB [Concomitant]
     Active Substance: CABOZANTINIB
     Indication: Hepatocellular carcinoma
     Dosage: INITIATED 4 MONTHS PRIOR TO OLT
     Route: 065
  6. REGORAFENIB [Concomitant]
     Active Substance: REGORAFENIB
     Indication: Adjuvant therapy
     Dosage: FOR 1-YEAR POST-OLT
     Route: 065

REACTIONS (1)
  - Hepatocellular carcinoma [Unknown]
